FAERS Safety Report 9345983 (Version 1)
Quarter: 2013Q2

REPORT INFORMATION
  Report Type: Spontaneous
  Country: IT (occurrence: IT)
  Receive Date: 20130613
  Receipt Date: 20130613
  Transmission Date: 20140414
  Serious: Yes (Hospitalization)
  Sender: FDA-Public Use
  Company Number: IT-BAYER-2013-067359

PATIENT
  Age: 76 Year
  Sex: Male

DRUGS (5)
  1. CIPROXIN [Suspect]
     Indication: BRONCHITIS
     Dosage: 250 MG, ONCE
     Route: 048
     Dates: start: 20130514, end: 20130514
  2. COMBISARTAN [Concomitant]
  3. CARDIOASPIRIN [Concomitant]
  4. LACIPIL [Concomitant]
  5. PANTORC [Concomitant]

REACTIONS (2)
  - Pleural disorder [None]
  - Lip oedema [Recovering/Resolving]
